FAERS Safety Report 17834593 (Version 1)
Quarter: 2020Q2

REPORT INFORMATION
  Report Type: Spontaneous
  Country: US (occurrence: US)
  Receive Date: 20200528
  Receipt Date: 20200528
  Transmission Date: 20200714
  Serious: Yes (Life-Threatening)
  Sender: FDA-Public Use
  Company Number: None

PATIENT
  Age: 86 Year
  Sex: Male
  Weight: 63.1 kg

DRUGS (2)
  1. ATORVASTATIN [Concomitant]
     Active Substance: ATORVASTATIN
     Dates: start: 20200508
  2. REMDESIVIR. [Suspect]
     Active Substance: REMDESIVIR
     Indication: COVID-19
     Route: 040
     Dates: start: 20200524, end: 20200525

REACTIONS (3)
  - Aspartate aminotransferase increased [None]
  - Alanine aminotransferase increased [None]
  - Therapy interrupted [None]

NARRATIVE: CASE EVENT DATE: 20200525
